FAERS Safety Report 22274706 (Version 1)
Quarter: 2023Q2

REPORT INFORMATION
  Report Type: Spontaneous
  Country: US (occurrence: None)
  Receive Date: 20230501
  Receipt Date: 20230501
  Transmission Date: 20230721
  Serious: Yes (Other)
  Sender: FDA-Public Use
  Company Number: None

PATIENT
  Age: 53 Year
  Sex: Male

DRUGS (27)
  1. OPSUMIT [Suspect]
     Active Substance: MACITENTAN
     Indication: Pulmonary hypertension
     Dosage: FREQUENCY : DAILY;?
     Route: 048
     Dates: start: 20210708
  2. ADEMPAS [Concomitant]
  3. ENOXAPARIN [Concomitant]
  4. DIZEPAM [Concomitant]
  5. WARFARIN [Concomitant]
  6. OXYGEN [Concomitant]
  7. MORPHINE [Concomitant]
     Active Substance: MORPHINE
  8. GABAPENTIN [Concomitant]
  9. LAMOTRIGINE [Concomitant]
  10. DULOXETINE [Concomitant]
  11. TORSEMIDE [Concomitant]
  12. SPIRONOLACTONE [Concomitant]
  13. NARCAN [Concomitant]
  14. ACETAMINOPHEN [Concomitant]
     Active Substance: ACETAMINOPHEN
  15. LITHIUM [Concomitant]
     Active Substance: LITHIUM
  16. WARFARIN [Concomitant]
     Active Substance: WARFARIN
  17. MAGNESIUM [Concomitant]
  18. OXIDE [Concomitant]
  19. TRIAMCINOLONE TOP CREAM [Concomitant]
  20. LIDOCAINE TOP CREAM [Concomitant]
  21. DICLOFENAIC OPTH DROP [Concomitant]
  22. SENOKOT-S [Concomitant]
     Active Substance: DOCUSATE SODIUM\SENNOSIDES
  23. NYSTATIN TOP POWDER [Concomitant]
  24. PREDNISONE [Concomitant]
  25. MELATONIN [Concomitant]
     Active Substance: MELATONIN
  26. RESPERIDONE [Concomitant]
  27. MULTIVITAMIN [Concomitant]

REACTIONS (2)
  - Aphasia [None]
  - Tremor [None]

NARRATIVE: CASE EVENT DATE: 20230421
